FAERS Safety Report 21397052 (Version 1)
Quarter: 2022Q3

REPORT INFORMATION
  Report Type: Spontaneous
  Country: AU (occurrence: AU)
  Receive Date: 20220930
  Receipt Date: 20220930
  Transmission Date: 20221027
  Serious: Yes (Hospitalization)
  Sender: FDA-Public Use
  Company Number: AU-ELI_LILLY_AND_COMPANY-AU202209009447

PATIENT
  Age: 18 Year
  Sex: Male

DRUGS (3)
  1. ZYPREXA RELPREVV [Suspect]
     Active Substance: OLANZAPINE PAMOATE
     Indication: Schizophrenia
     Dosage: UNK UNK, UNKNOWN
     Route: 030
     Dates: start: 20211122, end: 20211215
  2. ZYPREXA RELPREVV [Suspect]
     Active Substance: OLANZAPINE PAMOATE
     Indication: Schizophrenia
     Dosage: UNK UNK, UNKNOWN
     Route: 030
     Dates: start: 20211122, end: 20211215
  3. ZYPREXA RELPREVV [Suspect]
     Active Substance: OLANZAPINE PAMOATE
     Indication: Schizophrenia
     Dosage: UNK UNK, UNKNOWN
     Route: 030
     Dates: start: 20211122, end: 20211215

REACTIONS (6)
  - Disorientation [Recovered/Resolved]
  - Altered state of consciousness [Recovered/Resolved]
  - Ataxia [Recovered/Resolved]
  - Aggression [Recovered/Resolved]
  - Somnolence [Recovered/Resolved]
  - Confusional state [Recovered/Resolved]

NARRATIVE: CASE EVENT DATE: 20211215
